FAERS Safety Report 4400787-8 (Version None)
Quarter: 2004Q3

REPORT INFORMATION
  Report Type: 
  Country: None (occurrence: None)
  Receive Date: 20040907
  Receipt Date: 20030606
  Transmission Date: 20050211
  Serious: No
  Sender: FDA-Public Use
  Company Number: US-BRISTOL-MYERS SQUIBB COMPANY-12295697

PATIENT
  Age: 83 Year
  Sex: Female
  Weight: 65 kg

DRUGS (5)
  1. COUMADIN [Suspect]
     Route: 048
     Dates: end: 20040102
  2. QUININE [Concomitant]
  3. MAGNESIUM CITRATE [Concomitant]
     Indication: MUSCLE CRAMP
  4. COZAAR [Concomitant]
  5. SYNTHROID [Concomitant]

REACTIONS (1)
  - MUSCLE CRAMP [None]
